FAERS Safety Report 10507289 (Version 1)
Quarter: 2014Q3

REPORT INFORMATION
  Report Type: Spontaneous
  Country: US (occurrence: None)
  Receive Date: 20140915
  Receipt Date: 20140915
  Transmission Date: 20150326
  Serious: Yes (Other)
  Sender: FDA-Public Use
  Company Number: 2014-US-007083

PATIENT
  Age: 60 Year
  Sex: Female
  Weight: 68.5 kg

DRUGS (7)
  1. XYREM [Suspect]
     Active Substance: SODIUM OXYBATE
     Indication: CATAPLEXY
     Route: 048
     Dates: start: 20140602, end: 20140604
  2. DESOXYN [Suspect]
     Active Substance: METHAMPHETAMINE HYDROCHLORIDE
     Indication: CATAPLEXY
     Route: 048
     Dates: start: 20140723
  3. XYREM [Suspect]
     Active Substance: SODIUM OXYBATE
     Indication: NARCOLEPSY
     Route: 048
     Dates: start: 20140602, end: 20140604
  4. DESOXYN [Suspect]
     Active Substance: METHAMPHETAMINE HYDROCHLORIDE
     Indication: NARCOLEPSY
     Route: 048
     Dates: start: 20140723
  5. RITALIN [Concomitant]
     Active Substance: METHYLPHENIDATE HYDROCHLORIDE
  6. MORPHINE [Concomitant]
     Active Substance: MORPHINE
  7. LEVOTHYROXINE [Concomitant]
     Active Substance: LEVOTHYROXINE

REACTIONS (11)
  - Hyperthyroidism [None]
  - Muscle spasms [None]
  - Paraesthesia [None]
  - Hangover [None]
  - Weight decreased [None]
  - Nausea [None]
  - Hyperacusis [None]
  - Parosmia [None]
  - Pain in extremity [None]
  - Back pain [None]
  - Abnormal dreams [None]

NARRATIVE: CASE EVENT DATE: 20140602
